FAERS Safety Report 25512800 (Version 1)
Quarter: 2025Q3

REPORT INFORMATION
  Report Type: Spontaneous
  Country: IN (occurrence: IN)
  Receive Date: 20250703
  Receipt Date: 20250703
  Transmission Date: 20251021
  Serious: Yes (Other)
  Sender: B. BRAUN MEDICAL INC.
  Company Number: IN-B. Braun Medical Inc.-IN-BBM-202502524

PATIENT
  Age: 26 Year
  Sex: Female

DRUGS (8)
  1. LIDOCAINE HYDROCHLORIDE AND EPINEPHRINE BITARTRATE [Suspect]
     Active Substance: EPINEPHRINE BITARTRATE\LIDOCAINE HYDROCHLORIDE
     Indication: Anaesthesia
  2. MIDAZOLAM [Concomitant]
     Active Substance: MIDAZOLAM
  3. GLYCOPYRROLATE [Concomitant]
     Active Substance: GLYCOPYRROLATE
  4. PROPOFOL [Concomitant]
     Active Substance: PROPOFOL
  5. FENTANYL [Concomitant]
     Active Substance: FENTANYL
  6. ROCURONIUM [Concomitant]
     Active Substance: ROCURONIUM BROMIDE
  7. SEVOFLURANE [Concomitant]
     Active Substance: SEVOFLURANE
  8. REMIFENTANIL [Concomitant]
     Active Substance: REMIFENTANIL

REACTIONS (1)
  - Stress cardiomyopathy [Recovered/Resolved]
